FAERS Safety Report 9602768 (Version 1)
Quarter: 2013Q4

REPORT INFORMATION
  Report Type: Spontaneous
  Country: US (occurrence: US)
  Receive Date: 20131007
  Receipt Date: 20131007
  Transmission Date: 20140711
  Serious: Yes (Death)
  Sender: FDA-Public Use
  Company Number: US-INCYTE CORPORATION-2013IN002315

PATIENT
  Sex: Female
  Weight: 65.76 kg

DRUGS (8)
  1. JAKAFI [Suspect]
     Indication: MYELOFIBROSIS
     Dosage: 15 MG, BID
     Route: 048
     Dates: start: 20130514
  2. CENTRUM [Concomitant]
  3. LISINOPRIL [Concomitant]
     Dosage: 5 MG
  4. FLONASE NASAL SPRAY [Concomitant]
     Dosage: 0.05%
  5. OMEPRAZOLE DR [Concomitant]
     Dosage: 40 MG
  6. COLCRYS [Concomitant]
     Dosage: 0.6 MG
  7. ULORIC [Concomitant]
     Dosage: 80 MG
  8. BENICAR [Concomitant]
     Dosage: 20 MG

REACTIONS (1)
  - Death [Fatal]
